FAERS Safety Report 8896296 (Version 1)
Quarter: 2012Q4

REPORT INFORMATION
  Report Type: 
  Country: US (occurrence: None)
  Receive Date: 20121106
  Receipt Date: 20121106
  Transmission Date: 20130627
  Serious: Yes (Hospitalization)
  Sender: FDA-Public Use
  Company Number: None

PATIENT
  Sex: Female
  Weight: 48.1 kg

DRUGS (6)
  1. PEG-L-ASPARAGINASE [Suspect]
     Dates: end: 20121008
  2. PREDNISONE [Suspect]
     Dates: end: 20121102
  3. VINCRISTINE SULFATE [Suspect]
     Dates: end: 20121026
  4. CYTARABINE [Suspect]
     Dates: end: 20121005
  5. DAUNORUBICIN [Suspect]
     Dates: end: 20121026
  6. METHOTREXATE [Suspect]
     Dates: end: 20121012

REACTIONS (2)
  - Glucose tolerance impaired [None]
  - Diabetic ketoacidosis [None]
